FAERS Safety Report 7490658-5 (Version None)
Quarter: 2011Q2

REPORT INFORMATION
  Report Type: 
  Country: None (occurrence: None)
  Receive Date: 20110519
  Receipt Date: 20110516
  Transmission Date: 20111010
  Serious: Yes (Other)
  Sender: FDA-Public Use
  Company Number: GB-PFIZER INC-2011105089

PATIENT
  Age: 7 Year
  Sex: Female
  Weight: 24.1 kg

DRUGS (3)
  1. SALBUTAMOL [Concomitant]
     Dosage: UNK
     Dates: start: 20110202
  2. CLENIL [Concomitant]
     Dosage: UNK
     Dates: start: 20110222
  3. IBUPROFEN [Suspect]

REACTIONS (2)
  - ANGIOEDEMA [None]
  - URTICARIA [None]
